FAERS Safety Report 21755167 (Version 1)
Quarter: 2022Q4

REPORT INFORMATION
  Report Type: Report from Study
  Country: US (occurrence: US)
  Receive Date: 20221220
  Receipt Date: 20221220
  Transmission Date: 20230112
  Serious: No
  Sender: FDA-Public Use
  Company Number: US-002147023-NVSC2022US294283

PATIENT
  Sex: Female

DRUGS (1)
  1. PIQRAY [Suspect]
     Active Substance: ALPELISIB
     Indication: Breast cancer
     Dosage: 300 MG, QD
     Route: 048

REACTIONS (4)
  - Chest pain [Recovering/Resolving]
  - Diarrhoea [Recovering/Resolving]
  - Hyperglycaemia [Not Recovered/Not Resolved]
  - Nausea [Not Recovered/Not Resolved]
